FAERS Safety Report 7941653-0 (Version None)
Quarter: 2011Q4

REPORT INFORMATION
  Report Type: 
  Country: None (occurrence: None)
  Receive Date: 20111122
  Receipt Date: 20111122
  Transmission Date: 20120403
  Serious: Yes (Hospitalization)
  Sender: FDA-Public Use
  Company Number: None

PATIENT
  Age: 49 Year
  Sex: Male
  Weight: 61.4 kg

DRUGS (2)
  1. SULFAMETHOXAZOLE AND TRIMETHOPRIM [Suspect]
     Indication: UPPER RESPIRATORY TRACT INFECTION
     Dosage: 1 TAB EVERY DAY PO
     Route: 048
     Dates: start: 20111006, end: 20111020
  2. SULFAMETHOXAZOLE AND TRIMETHOPRIM [Suspect]
     Indication: PROPHYLAXIS
     Dosage: 1 TAB EVERY DAY PO
     Route: 048
     Dates: start: 20111006, end: 20111020

REACTIONS (4)
  - BLOOD CREATINE INCREASED [None]
  - ANGIOEDEMA [None]
  - HEPATIC ENZYME INCREASED [None]
  - BLOOD UREA INCREASED [None]
